FAERS Safety Report 9708781 (Version 2)
Quarter: 2014Q1

REPORT INFORMATION
  Report Type: Spontaneous
  Country: US (occurrence: US)
  Receive Date: 20131125
  Receipt Date: 20140208
  Transmission Date: 20141002
  Serious: No
  Sender: FDA-Public Use
  Company Number: US-009507513-1311USA009704

PATIENT
  Age: 78 Year
  Sex: Female
  Weight: 86.17 kg

DRUGS (2)
  1. OXYTROL FOR WOMEN [Suspect]
     Indication: PRODUCT USED FOR UNKNOWN INDICATION
     Dosage: UNK, UNKNOWN
     Route: 062
     Dates: start: 20131028
  2. SYNTHROID [Concomitant]
     Indication: PRODUCT USED FOR UNKNOWN INDICATION
     Dosage: UNK, UNKNOWN

REACTIONS (4)
  - Dizziness [Recovered/Resolved]
  - Heart rate increased [Unknown]
  - Pollakiuria [Unknown]
  - Poor quality sleep [Recovered/Resolved]
